FAERS Safety Report 5179040-3 (Version None)
Quarter: 2006Q4

REPORT INFORMATION
  Report Type: 
  Country: None (occurrence: None)
  Receive Date: 20061219
  Receipt Date: 20061114
  Transmission Date: 20070319
  Serious: Yes (Hospitalization)
  Sender: FDA-Public Use
  Company Number: ES-BRISTOL-MYERS SQUIBB COMPANY-13577184

PATIENT
  Age: 67 Year
  Sex: Male

DRUGS (12)
  1. CISPLATIN [Suspect]
     Indication: GASTRIC CANCER
     Route: 041
     Dates: start: 20060821, end: 20060821
  2. TS-1 [Suspect]
     Indication: GASTRIC CANCER
     Route: 048
     Dates: start: 20060821, end: 20060904
  3. LANTUS [Concomitant]
     Indication: HYPERGLYCAEMIA
     Dates: start: 20060802
  4. OMEPRAZOLE [Concomitant]
     Indication: PROPHYLAXIS
     Route: 048
     Dates: start: 20060505
  5. ENOXAPARIN SODIUM [Concomitant]
     Indication: THROMBOSIS PROPHYLAXIS
     Route: 058
     Dates: start: 20060504
  6. IRON [Concomitant]
     Indication: ANAEMIA
     Route: 048
     Dates: start: 20060602
  7. TAMSULOSIN HCL [Concomitant]
     Indication: BENIGN PROSTATIC HYPERPLASIA
     Route: 048
     Dates: start: 20060524
  8. BUFLOMEDIL [Concomitant]
     Indication: ISCHAEMIA
     Route: 048
     Dates: start: 20040201
  9. PENTOXIFYLLINE [Concomitant]
     Indication: ISCHAEMIA
     Route: 048
     Dates: start: 20040201
  10. SALMETEROL [Concomitant]
     Indication: CHRONIC OBSTRUCTIVE PULMONARY DISEASE
     Route: 055
     Dates: start: 20030901
  11. TIOTROPIUM BROMIDE [Concomitant]
     Indication: CHRONIC OBSTRUCTIVE PULMONARY DISEASE
     Route: 055
     Dates: start: 20040115
  12. CHLORPROMAZINE [Concomitant]
     Indication: HICCUPS
     Route: 048
     Dates: start: 20060710

REACTIONS (1)
  - FATIGUE [None]
